FAERS Safety Report 4850468-1 (Version None)
Quarter: 2005Q4

REPORT INFORMATION
  Report Type: 
  Country: None (occurrence: None)
  Receive Date: 20051123
  Receipt Date: 20051026
  Transmission Date: 20060501
  Serious: No
  Sender: FDA-Public Use
  Company Number: 218918

PATIENT
  Age: 50 Year
  Sex: Female
  Weight: 75 kg

DRUGS (1)
  1. RAPTIVA [Suspect]
     Indication: PSORIASIS
     Dosage: 75 MG, 1/WEEK, SUBCUTANEOUS
     Route: 058
     Dates: start: 20050430, end: 20051025

REACTIONS (1)
  - PSORIASIS [None]
